FAERS Safety Report 4907309-3 (Version None)
Quarter: 2006Q1

REPORT INFORMATION
  Report Type: 
  Country: None (occurrence: None)
  Receive Date: 20060208
  Receipt Date: 20060208
  Transmission Date: 20060701
  Serious: No
  Sender: FDA-Public Use
  Company Number: None

PATIENT
  Sex: Female

DRUGS (1)
  1. METHADONE 10MG [Suspect]
     Dosage: 10 MG BID

REACTIONS (1)
  - UNEVALUABLE EVENT [None]
